FAERS Safety Report 5041822-6 (Version None)
Quarter: 2006Q3

REPORT INFORMATION
  Report Type: 
  Country: None (occurrence: None)
  Receive Date: 20060704
  Receipt Date: 20060629
  Transmission Date: 20061208
  Serious: Yes (Other)
  Sender: FDA-Public Use
  Company Number: AU-SP-2006-01612

PATIENT
  Age: 72 Year
  Sex: Female

DRUGS (1)
  1. BCG  THERAPEUTICS [Suspect]
     Indication: CARCINOMA IN SITU OF BLADDER
     Route: 043

REACTIONS (7)
  - BLOOD CREATININE INCREASED [None]
  - FIBROSIS [None]
  - FLANK PAIN [None]
  - GRANULOMA [None]
  - NEPHRITIS INTERSTITIAL [None]
  - PYREXIA [None]
  - TENDERNESS [None]
